FAERS Safety Report 6271410-5 (Version None)
Quarter: 2009Q3

REPORT INFORMATION
  Report Type: 
  Country: None (occurrence: None)
  Receive Date: 20090717
  Receipt Date: 20090707
  Transmission Date: 20100115
  Serious: Yes (Disabling)
  Sender: FDA-Public Use
  Company Number: CZ-ROCHE-642735

PATIENT
  Sex: Female

DRUGS (1)
  1. MIRCERA [Suspect]
     Route: 065
     Dates: start: 20080415, end: 20090617

REACTIONS (2)
  - APHASIA [None]
  - VISUAL IMPAIRMENT [None]
